FAERS Safety Report 23678202 (Version 1)
Quarter: 2024Q1

REPORT INFORMATION
  Report Type: Spontaneous
  Country: GB (occurrence: GB)
  Receive Date: 20240327
  Receipt Date: 20240327
  Transmission Date: 20240409
  Serious: Yes (Hospitalization)
  Sender: FDA-Public Use
  Company Number: GB-VERTEX PHARMACEUTICALS-2024-005248

PATIENT
  Sex: Male

DRUGS (1)
  1. ORKAMBI [Suspect]
     Active Substance: IVACAFTOR\LUMACAFTOR
     Indication: Cystic fibrosis
     Dosage: 1 DOSAGE FORM (150MG LUMACAFTOR/188MG IVACAFTOR), BID
     Route: 048

REACTIONS (2)
  - Cough [Not Recovered/Not Resolved]
  - Body temperature abnormal [Not Recovered/Not Resolved]
